FAERS Safety Report 26152939 (Version 1)
Quarter: 2025Q4

REPORT INFORMATION
  Report Type: Report from Study
  Country: US (occurrence: US)
  Receive Date: 20251214
  Receipt Date: 20251214
  Transmission Date: 20260117
  Serious: Yes (Other)
  Sender: ABBVIE
  Company Number: US-ABBVIE-6584323

PATIENT
  Age: 55 Year
  Sex: Female

DRUGS (1)
  1. HUMIRA [Suspect]
     Active Substance: ADALIMUMAB
     Indication: Product used for unknown indication
     Route: 058
     Dates: start: 2009

REACTIONS (7)
  - Seizure [Unknown]
  - Intervertebral disc protrusion [Unknown]
  - Concussion [Unknown]
  - White matter lesion [Unknown]
  - Crohn^s disease [Unknown]
  - Accident [Unknown]
  - H1N1 influenza [Unknown]

NARRATIVE: CASE EVENT DATE: 20250501
